FAERS Safety Report 10515173 (Version 2)
Quarter: 2015Q1

REPORT INFORMATION
  Report Type: Spontaneous
  Country: FR (occurrence: FR)
  Receive Date: 20141014
  Receipt Date: 20150227
  Transmission Date: 20150720
  Serious: Yes (Other)
  Sender: FDA-Public Use
  Company Number: FR-ROCHE-1471921

PATIENT
  Sex: Female

DRUGS (8)
  1. VESANOID [Suspect]
     Active Substance: TRETINOIN
     Indication: ACUTE MYELOID LEUKAEMIA
     Route: 048
     Dates: start: 200906, end: 201106
  2. ZAVEDOS [Concomitant]
     Active Substance: IDARUBICIN
     Route: 065
     Dates: start: 200901, end: 200905
  3. TRISENOX [Concomitant]
     Active Substance: ARSENIC TRIOXIDE
     Route: 065
     Dates: start: 200902, end: 200905
  4. ARACYTINE [Concomitant]
     Active Substance: CYTARABINE
     Route: 065
     Dates: start: 200901, end: 200901
  5. PURINETHOL [Concomitant]
     Active Substance: MERCAPTOPURINE
     Route: 065
     Dates: start: 200906, end: 201106
  6. RISPERDAL [Concomitant]
     Active Substance: RISPERIDONE
  7. CODEINE [Suspect]
     Active Substance: CODEINE
     Indication: PRODUCT USED FOR UNKNOWN INDICATION
     Route: 065
  8. METHOTREXATE [Concomitant]
     Active Substance: METHOTREXATE
     Route: 065
     Dates: start: 200906, end: 201106

REACTIONS (3)
  - Abnormal behaviour [Unknown]
  - Drug dependence [Unknown]
  - Gambling [Unknown]
